FAERS Safety Report 4571396-5 (Version None)
Quarter: 2005Q1

REPORT INFORMATION
  Report Type: 
  Country: None (occurrence: None)
  Receive Date: 20050205
  Receipt Date: 20050103
  Transmission Date: 20050727
  Serious: Yes (Hospitalization, Other)
  Sender: FDA-Public Use
  Company Number: PT-ABBOTT-05P-130-0287380-00

PATIENT
  Sex: Male

DRUGS (5)
  1. KALETRA [Suspect]
     Indication: HIV INFECTION
     Route: 048
     Dates: start: 20030101
  2. STAVUDINE [Suspect]
     Indication: HIV INFECTION
     Dates: start: 20030101
  3. VIREAD [Suspect]
     Indication: HIV INFECTION
     Dates: start: 20030101
  4. METHADONE HCL [Concomitant]
     Indication: DRUG DEPENDENCE
     Dates: start: 20020401, end: 20040601
  5. NEVIRAPINE [Concomitant]
     Indication: HIV INFECTION
     Dates: start: 20030101

REACTIONS (2)
  - AGGRESSION [None]
  - HALLUCINATION [None]
